FAERS Safety Report 14996414 (Version 2)
Quarter: 2019Q3

REPORT INFORMATION
  Report Type: Spontaneous
  Country: CA (occurrence: CA)
  Receive Date: 20180611
  Receipt Date: 20190731
  Transmission Date: 20191004
  Serious: Yes (Other)
  Sender: FDA-Public Use
  Company Number: CA-BAYER-2018-107252

PATIENT
  Age: 43 Year
  Sex: Female

DRUGS (3)
  1. MIRENA [Suspect]
     Active Substance: LEVONORGESTREL
     Dosage: 20 MCG/24HR, CONT
     Route: 015
     Dates: end: 20130107
  2. MIRENA [Suspect]
     Active Substance: LEVONORGESTREL
  3. MIRENA [Suspect]
     Active Substance: LEVONORGESTREL
     Dosage: 20 MCG/24HR, CONT
     Route: 015
     Dates: start: 20130107, end: 20170526

REACTIONS (3)
  - Invasive ductal breast carcinoma [None]
  - Embedded device [Recovered/Resolved]
  - Embedded device [None]
